FAERS Safety Report 5754293-9 (Version None)
Quarter: 2008Q2

REPORT INFORMATION
  Report Type: 
  Country: None (occurrence: None)
  Receive Date: 20080530
  Receipt Date: 20080523
  Transmission Date: 20081010
  Serious: Yes (Hospitalization)
  Sender: FDA-Public Use
  Company Number: US-GENENTECH-261629

PATIENT
  Sex: Male
  Weight: 82.086 kg

DRUGS (8)
  1. BEVACIZUMAB [Suspect]
     Indication: COLORECTAL CANCER
  2. DARBEPOETIN ALFA [Suspect]
     Indication: ANAEMIA
     Dosage: 500 A?G, Q3W
     Route: 058
     Dates: start: 20070711
  3. FLUOROURACIL [Suspect]
     Indication: COLORECTAL CANCER
  4. FOLINIC ACID [Suspect]
     Indication: COLORECTAL CANCER
  5. OXALIPLATIN [Suspect]
     Indication: COLORECTAL CANCER
  6. FERROUS SULFATE TAB [Concomitant]
     Indication: DRUG USE FOR UNKNOWN INDICATION
     Dosage: 325 MG, UNK
     Route: 048
     Dates: start: 20070628
  7. OXYCOCET [Concomitant]
     Indication: DRUG USE FOR UNKNOWN INDICATION
     Dosage: 5 MG, PRN
     Route: 048
  8. OXYCODONE HCL [Concomitant]
     Indication: DRUG USE FOR UNKNOWN INDICATION
     Dosage: 20 MG, PRN
     Route: 048

REACTIONS (1)
  - ANAEMIA [None]
